FAERS Safety Report 19802008 (Version 1)
Quarter: 2021Q3

REPORT INFORMATION
  Report Type: Spontaneous
  Country: US (occurrence: US)
  Receive Date: 20210908
  Receipt Date: 20210908
  Transmission Date: 20211014
  Serious: Yes (Other)
  Sender: FDA-Public Use
  Company Number: US-ROCHE-2901224

PATIENT
  Sex: Male
  Weight: 18.16 kg

DRUGS (4)
  1. PULMOZYME [Suspect]
     Active Substance: DORNASE ALFA
     Indication: CYSTIC FIBROSIS
     Dosage: 1 MG/ML, 2.5 ML, PULMOZYME SOL
     Route: 048
     Dates: start: 20200529
  2. ALBUTEROL. [Concomitant]
     Active Substance: ALBUTEROL
     Dates: start: 20200720
  3. PULMOZYME [Concomitant]
     Active Substance: DORNASE ALFA
     Dates: start: 20200527
  4. CREON [Concomitant]
     Active Substance: PANCRELIPASE AMYLASE\PANCRELIPASE LIPASE\PANCRELIPASE PROTEASE
     Route: 048
     Dates: start: 20200720

REACTIONS (1)
  - Pneumonia [Recovering/Resolving]
